FAERS Safety Report 4852055-8 (Version None)
Quarter: 2005Q4

REPORT INFORMATION
  Report Type: 
  Country: None (occurrence: None)
  Receive Date: 20051213
  Receipt Date: 20030317
  Transmission Date: 20060501
  Serious: Yes (Hospitalization, Disabling)
  Sender: FDA-Public Use
  Company Number: PL-ROCHE-334255

PATIENT
  Age: 46 Year
  Sex: Male
  Weight: 73.5 kg

DRUGS (21)
  1. CELLCEPT [Suspect]
     Route: 048
     Dates: start: 20020928
  2. CELLCEPT [Suspect]
     Route: 048
     Dates: start: 20030104, end: 20041007
  3. CELLCEPT [Suspect]
     Route: 048
     Dates: start: 20041008
  4. CELLCEPT [Suspect]
     Route: 042
     Dates: start: 20021231, end: 20030103
  5. DACLIZUMAB [Suspect]
     Dosage: ALSO REPORTED AS 2MG/KG.
     Route: 042
     Dates: start: 20020928, end: 20020928
  6. DACLIZUMAB [Suspect]
     Dosage: FOR A TOTAL OF 4 DOSES. DOSE ALSO REPORTED AS 1 MG/KG.
     Route: 042
     Dates: start: 20021011, end: 20021122
  7. CYCLOSPORINE [Concomitant]
     Dates: start: 20021129, end: 20041007
  8. PREDNISONE [Concomitant]
     Dates: start: 20021221
  9. OMEPRAZOLE [Concomitant]
     Dates: start: 20030106, end: 20030205
  10. RANITIDINE [Concomitant]
     Dates: start: 20030206
  11. METOPROLOL [Concomitant]
     Dates: start: 20021001
  12. AMLODIPINE [Concomitant]
     Dates: start: 20020928
  13. CLONIDINE HCL [Concomitant]
     Dates: start: 20021001, end: 20030116
  14. INSULIN INFUSION [Concomitant]
     Dates: start: 20021201, end: 20030108
  15. INSULINUM [Concomitant]
     Dosage: GIVEN ACCORDING TO GLYCAEMIA LEVELS.
     Route: 058
     Dates: start: 20030109
  16. AMOXICILINA / CLAVULANICO [Concomitant]
     Dates: start: 20021230, end: 20021231
  17. DIHYDRALAZINUM [Concomitant]
     Dates: start: 20030506
  18. PRAZOSIN [Concomitant]
     Dates: start: 20040528, end: 20040708
  19. INDAPAMIDE [Concomitant]
     Dates: start: 20030504
  20. ASPIRIN [Concomitant]
     Dates: start: 20030415
  21. FUROSEMIDE [Concomitant]
     Dates: start: 20040530, end: 20041006

REACTIONS (11)
  - CULTURE URINE POSITIVE [None]
  - DEHYDRATION [None]
  - ENTEROCOCCAL INFECTION [None]
  - NAUSEA [None]
  - OSTEITIS [None]
  - PHARYNGOLARYNGEAL PAIN [None]
  - PSEUDOMONAS INFECTION [None]
  - PYREXIA [None]
  - RENAL ARTERY STENOSIS [None]
  - STAPHYLOCOCCAL INFECTION [None]
  - STREPTOCOCCAL INFECTION [None]
